FAERS Safety Report 15160855 (Version 5)
Quarter: 2019Q2

REPORT INFORMATION
  Report Type: Spontaneous
  Country: JP (occurrence: JP)
  Receive Date: 20180718
  Receipt Date: 20190607
  Transmission Date: 20190711
  Serious: Yes (Other)
  Sender: FDA-Public Use
  Company Number: JP-SA-2018SA189295

PATIENT
  Age: 44 Year
  Sex: Male
  Weight: 92.7 kg

DRUGS (8)
  1. DUPIXENT [Suspect]
     Active Substance: DUPILUMAB
     Indication: DERMATITIS ATOPIC
     Dosage: 300 MG, QOW
     Route: 058
     Dates: start: 20180529, end: 20180626
  2. IPD [Concomitant]
     Active Substance: SUPLATAST TOSILATE
     Indication: DERMATITIS ATOPIC
     Dosage: 100 MG, TID, MORNING NOON EVENING
     Route: 048
     Dates: start: 20180628
  3. HIRUDOID [Concomitant]
     Active Substance: GLYCOSAMINOGLYCANS
     Indication: PRODUCT USED FOR UNKNOWN INDICATION
     Dosage: UNK
     Route: 061
     Dates: start: 20180226
  4. PAROXETINE. [Concomitant]
     Active Substance: PAROXETINE
     Indication: PANIC DISORDER
     Dosage: 20 MG, QD, EVENING
     Route: 048
     Dates: start: 20170302
  5. OLOPATADINE HYDROCHLORIDE. [Concomitant]
     Active Substance: OLOPATADINE HYDROCHLORIDE
     Indication: PRURITUS
     Dosage: 5 MG, BID, MORNING AND EVENING
     Route: 048
     Dates: start: 20180628
  6. APLEWAY [Concomitant]
     Active Substance: TOFOGLIFLOZIN
     Indication: TYPE 2 DIABETES MELLITUS
     Dosage: 20 MG, QD, MORNING
     Route: 048
     Dates: start: 20171019
  7. METGLUCO [Concomitant]
     Active Substance: METFORMIN HYDROCHLORIDE
     Indication: TYPE 2 DIABETES MELLITUS
     Dosage: 500 MG, BID, MORNING AND EVENING
     Route: 048
     Dates: start: 20171026
  8. KINDAVATE [Concomitant]
     Active Substance: CLOBETASONE BUTYRATE
     Indication: PRODUCT USED FOR UNKNOWN INDICATION
     Dosage: UNK
     Route: 061
     Dates: start: 20180612

REACTIONS (7)
  - Eosinophil count increased [Recovering/Resolving]
  - Cutaneous symptom [Recovering/Resolving]
  - Chemokine increased [Unknown]
  - Condition aggravated [Recovering/Resolving]
  - Dermatitis exfoliative generalised [Recovering/Resolving]
  - Pruritus [Recovering/Resolving]
  - Rash erythematous [Recovering/Resolving]

NARRATIVE: CASE EVENT DATE: 2018
